FAERS Safety Report 9465462 (Version 3)
Quarter: 2014Q3

REPORT INFORMATION
  Report Type: Spontaneous
  Country: JP (occurrence: JP)
  Receive Date: 20130820
  Receipt Date: 20140825
  Transmission Date: 20150326
  Serious: Yes (Hospitalization)
  Sender: FDA-Public Use
  Company Number: JP-009507513-1308JPN007880

PATIENT
  Sex: Male

DRUGS (4)
  1. JANUVIA [Suspect]
     Active Substance: SITAGLIPTIN PHOSPHATE
     Dosage: 50 MG, QAM, ONE IN THE MORNING
     Route: 048
  2. GLUFAST [Concomitant]
     Active Substance: MITIGLINIDE
     Dosage: DAILY DOSAGE UNKNOWN USED IN SOME VERY EXTREME CASES IMMEDIATELY BEFORE FOOD
     Route: 048
  3. GLUCOBAY [Concomitant]
     Active Substance: ACARBOSE
     Dosage: DAILY DOSAGE UNKNOWN USED IN SOME VERY EXTREME CASES IMMEDIATELY BEFORE FOOD
     Route: 048
  4. JANUVIA [Suspect]
     Active Substance: SITAGLIPTIN PHOSPHATE
     Dosage: DAILY DOSAGE UNKNOWN
     Route: 048

REACTIONS (5)
  - Glycosylated haemoglobin increased [Recovering/Resolving]
  - Adverse event [Recovering/Resolving]
  - Palpitations [Unknown]
  - Appetite disorder [Unknown]
  - Pollakiuria [Unknown]

NARRATIVE: CASE EVENT DATE: 201205
